FAERS Safety Report 21796256 (Version 2)
Quarter: 2023Q1

REPORT INFORMATION
  Report Type: Spontaneous
  Country: US (occurrence: US)
  Receive Date: 20221229
  Receipt Date: 20230110
  Transmission Date: 20230417
  Serious: Yes (Other)
  Sender: FDA-Public Use
  Company Number: US-TEVA-2022-US-2839299

PATIENT
  Age: 54 Year
  Sex: Female

DRUGS (31)
  1. BUPROPION [Interacting]
     Active Substance: BUPROPION
     Indication: Depression
     Dosage: 400 MILLIGRAM DAILY; EXTENDED-RELEASE
     Route: 048
  2. ELETRIPTAN [Interacting]
     Active Substance: ELETRIPTAN
     Indication: Migraine
     Dosage: AS NEEDED ,40 MG
     Route: 048
  3. ACETAMINOPHEN\HYDROCODONE [Interacting]
     Active Substance: ACETAMINOPHEN\HYDROCODONE
     Indication: Pain
     Route: 065
  4. CARBIDOPA\LEVODOPA [Interacting]
     Active Substance: CARBIDOPA\LEVODOPA
     Indication: Parkinsonism
     Dosage: THREE TIMES DAILY (IMMEDIATE-RELEASE) , LEVODOPA: 100 MG; CARBIDOPA: 25 MG; ADDITIONAL INFO: ACTION
     Route: 048
  5. CARBIDOPA\LEVODOPA [Interacting]
     Active Substance: CARBIDOPA\LEVODOPA
     Dosage: TWO TABLETS (EXTENDED RELEASE)
     Route: 048
  6. MORPHINE SULFATE [Interacting]
     Active Substance: MORPHINE SULFATE
     Indication: Pain
     Dosage: 30 MILLIGRAM DAILY; EXTENDED-RELEASE
     Route: 048
  7. ONDANSETRON [Interacting]
     Active Substance: ONDANSETRON
     Indication: Nausea
     Dosage: THREE TIMES DAILY , 8 MG
     Route: 048
  8. ACETAMINOPHEN\OXYCODONE HYDROCHLORIDE [Interacting]
     Active Substance: ACETAMINOPHEN\OXYCODONE HYDROCHLORIDE
     Indication: Pain
     Route: 048
  9. PREGABALIN [Suspect]
     Active Substance: PREGABALIN
     Indication: Neuralgia
     Dosage: 300 MILLIGRAM DAILY;
     Route: 048
  10. ROPINIROLE [Interacting]
     Active Substance: ROPINIROLE
     Indication: Restless legs syndrome
     Dosage: .5 MILLIGRAM DAILY;
     Route: 048
  11. BUSPIRONE [Interacting]
     Active Substance: BUSPIRONE HYDROCHLORIDE
     Indication: Anxiety disorder
     Dosage: 60 MILLIGRAM DAILY;
     Route: 048
  12. ALBUTEROL [Interacting]
     Active Substance: ALBUTEROL
     Indication: Asthma
     Route: 055
  13. RANITIDINE [Interacting]
     Active Substance: RANITIDINE
     Indication: Gastrooesophageal reflux disease
     Dosage: 300 MILLIGRAM DAILY;
     Route: 048
  14. SUVOREXANT [Interacting]
     Active Substance: SUVOREXANT
     Indication: Insomnia
     Dosage: 20 MILLIGRAM DAILY; AT NIGHT
     Route: 048
  15. DOMPERIDONE [Suspect]
     Active Substance: DOMPERIDONE
     Indication: Gastrooesophageal reflux disease
     Dosage: THREE TO FOUR TIMES PER DAY BEFORE MEALS , 10 MG
     Route: 048
  16. CLONAZEPAM [Concomitant]
     Active Substance: CLONAZEPAM
     Indication: Anxiety disorder
     Dosage: 1 MILLIGRAM DAILY;
     Route: 048
  17. GABAPENTIN [Concomitant]
     Active Substance: GABAPENTIN
     Indication: Neuralgia
     Dosage: THREE TIMES DAILY , 800 MG
     Route: 048
  18. PULMICORT TURBUHALER [Concomitant]
     Active Substance: BUDESONIDE
     Indication: Asthma
     Dosage: 360 MICROGRAM DAILY;
     Route: 055
  19. TIZANIDINE [Concomitant]
     Active Substance: TIZANIDINE
     Indication: Muscle spasms
     Dosage: 6 MILLIGRAM DAILY;
     Route: 048
  20. NITROGLYCERIN [Concomitant]
     Active Substance: NITROGLYCERIN
     Indication: Angina unstable
     Dosage: AS NEEDED , 0.4 MG
     Route: 060
  21. MONTELUKAST [Concomitant]
     Active Substance: MONTELUKAST SODIUM
     Indication: Asthma
     Dosage: 10 MILLIGRAM DAILY;
     Route: 048
  22. LANTUS SOLOSTAR [Concomitant]
     Active Substance: INSULIN GLARGINE
     Indication: Diabetes mellitus
     Dosage: 100 UNITS/ML 30 UNITS
     Route: 058
  23. METFORMIN [Concomitant]
     Active Substance: METFORMIN HYDROCHLORIDE
     Indication: Diabetes mellitus
     Dosage: 2000 MILLIGRAM DAILY;
     Route: 048
  24. NOVOLOG [Concomitant]
     Active Substance: INSULIN ASPART
     Indication: Diabetes mellitus
     Dosage: 100 UNITS/ML 2-10 UNITS
     Route: 058
  25. OMEPRAZOLE [Concomitant]
     Active Substance: OMEPRAZOLE
     Indication: Gastrooesophageal reflux disease
     Dosage: 40 MILLIGRAM DAILY;
     Route: 048
  26. SIMVASTATIN [Concomitant]
     Active Substance: SIMVASTATIN
     Indication: Hyperlipidaemia
     Dosage: 40 MILLIGRAM DAILY; EVERY NIGHT
     Route: 048
  27. HYDROCHLOROTHIAZIDE [Concomitant]
     Active Substance: HYDROCHLOROTHIAZIDE
     Indication: Hypertension
     Dosage: 25 MILLIGRAM DAILY;
     Route: 048
  28. LISINOPRIL [Concomitant]
     Active Substance: LISINOPRIL
     Indication: Hypertension
     Dosage: 2.5 MILLIGRAM DAILY;
     Route: 048
  29. MAGNESIUM OXIDE [Concomitant]
     Active Substance: MAGNESIUM OXIDE
     Indication: Restless legs syndrome
     Dosage: 400 MILLIGRAM DAILY;
     Route: 048
  30. VITAMINS [Concomitant]
     Active Substance: VITAMINS
     Indication: Vitamin supplementation
     Route: 048
  31. VITAMIN D3 [Concomitant]
     Active Substance: CHOLECALCIFEROL
     Indication: Vitamin supplementation
     Dosage: 1000 IU (INTERNATIONAL UNIT) DAILY;
     Route: 048

REACTIONS (4)
  - Parkinsonism [Not Recovered/Not Resolved]
  - Serotonin syndrome [Unknown]
  - Tremor [Not Recovered/Not Resolved]
  - Drug interaction [Unknown]
